FAERS Safety Report 12362042 (Version 2)
Quarter: 2016Q2

REPORT INFORMATION
  Report Type: Spontaneous
  Country: US (occurrence: US)
  Receive Date: 20160512
  Receipt Date: 20160609
  Transmission Date: 20160815
  Serious: Yes (Death, Other)
  Sender: FDA-Public Use
  Company Number: US-ASTELLAS-2016US018488

PATIENT
  Age: 66 Year
  Sex: Female
  Weight: 144 kg

DRUGS (1)
  1. LEXISCAN [Suspect]
     Active Substance: REGADENOSON
     Indication: SCAN MYOCARDIAL PERFUSION
     Dosage: UNK, UNKNOWN FREQ.
     Route: 065
     Dates: start: 20160428, end: 20160428

REACTIONS (3)
  - Aneurysm [Unknown]
  - Pulmonary embolism [Unknown]
  - Death [Fatal]
